FAERS Safety Report 9136184 (Version 1)
Quarter: 2013Q1

REPORT INFORMATION
  Report Type: Spontaneous
  Country: US (occurrence: US)
  Receive Date: 20130304
  Receipt Date: 20130304
  Transmission Date: 20140127
  Serious: Yes (Death)
  Sender: FDA-Public Use
  Company Number: US-GLAXOSMITHKLINE-A1013445A

PATIENT
  Age: 53 Year
  Sex: Male

DRUGS (5)
  1. VOTRIENT [Suspect]
     Indication: RENAL CELL CARCINOMA
     Dosage: 4TAB PER DAY
     Route: 048
     Dates: start: 20130103
  2. OXYCODONE [Concomitant]
  3. MEGESTROL [Concomitant]
  4. FUROSEMIDE [Concomitant]
  5. MIRTAZAPINE [Concomitant]

REACTIONS (3)
  - Malignant neoplasm progression [Fatal]
  - Transfusion [Unknown]
  - Haemoglobin decreased [Unknown]
